FAERS Safety Report 14617390 (Version 1)
Quarter: 2018Q1

REPORT INFORMATION
  Report Type: Spontaneous
  Country: US (occurrence: US)
  Receive Date: 20180309
  Receipt Date: 20180309
  Transmission Date: 20180509
  Serious: Yes (Hospitalization, Other)
  Sender: FDA-Public Use
  Company Number: US-ROCHE-2081772

PATIENT
  Age: 75 Year
  Sex: Male
  Weight: 85.35 kg

DRUGS (9)
  1. SOLU-MEDROL [Concomitant]
     Active Substance: METHYLPREDNISOLONE SODIUM SUCCINATE
     Dosage: ONGOING:NO
     Route: 042
     Dates: start: 20180104
  2. PREDNISONE. [Suspect]
     Active Substance: PREDNISONE
     Route: 065
     Dates: start: 201802
  3. TECENTRIQ [Suspect]
     Active Substance: ATEZOLIZUMAB
     Indication: LUNG NEOPLASM MALIGNANT
     Route: 042
     Dates: start: 201710
  4. SOLU-MEDROL [Concomitant]
     Active Substance: METHYLPREDNISOLONE SODIUM SUCCINATE
     Dosage: ONGOING:YES
     Route: 048
  5. PREDNISONE. [Suspect]
     Active Substance: PREDNISONE
     Indication: PRODUCT USED FOR UNKNOWN INDICATION
     Route: 065
     Dates: start: 20180109, end: 201802
  6. LASIX + K [Concomitant]
     Active Substance: FUROSEMIDE\POTASSIUM CHLORIDE
     Dosage: ONGOING:NO
     Route: 065
     Dates: start: 20180102, end: 20180104
  7. AUGMENTIN [Concomitant]
     Active Substance: AMOXICILLIN\CLAVULANATE POTASSIUM
     Dosage: ONGOING:NO
     Route: 065
     Dates: start: 201801, end: 201801
  8. LEVOFLOXACIN. [Suspect]
     Active Substance: LEVOFLOXACIN
     Indication: PRODUCT USED FOR UNKNOWN INDICATION
     Route: 065
     Dates: start: 20180102, end: 20180102
  9. FLOMAX [Concomitant]
     Active Substance: TAMSULOSIN HYDROCHLORIDE
     Dosage: YES
     Route: 048

REACTIONS (17)
  - Pulmonary fibrosis [Unknown]
  - Swelling face [Not Recovered/Not Resolved]
  - Granuloma [Unknown]
  - Weight decreased [Recovered/Resolved]
  - Amnesia [Not Recovered/Not Resolved]
  - Anxiety [Unknown]
  - Emphysema [Unknown]
  - Abdominal pain upper [Unknown]
  - Dyspnoea [Unknown]
  - Pneumonectomy [Recovered/Resolved]
  - Anger [Not Recovered/Not Resolved]
  - Swelling [Unknown]
  - Headache [Unknown]
  - Flank pain [Unknown]
  - Extremity contracture [Not Recovered/Not Resolved]
  - Tremor [Not Recovered/Not Resolved]
  - Hiatus hernia [Unknown]

NARRATIVE: CASE EVENT DATE: 20171115
